FAERS Safety Report 21283851 (Version 1)
Quarter: 2022Q3

REPORT INFORMATION
  Report Type: Report from Study
  Country: US (occurrence: US)
  Receive Date: 20220901
  Receipt Date: 20220901
  Transmission Date: 20221026
  Serious: Yes (Death, Other)
  Sender: FDA-Public Use
  Company Number: US-Taiho Oncology Inc-EU-2022-01393

PATIENT
  Age: 64 Year
  Sex: Male

DRUGS (4)
  1. LONSURF [Suspect]
     Active Substance: TIPIRACIL HYDROCHLORIDE\TRIFLURIDINE
     Indication: Malignant neoplasm of renal pelvis
     Dosage: CYCLE 1, DOSE UNKNOWN (3 TABLETS)
     Route: 048
  2. LONSURF [Suspect]
     Active Substance: TIPIRACIL HYDROCHLORIDE\TRIFLURIDINE
     Indication: Metastasis
     Dosage: CYCLE 3
     Route: 048
  3. LONSURF [Suspect]
     Active Substance: TIPIRACIL HYDROCHLORIDE\TRIFLURIDINE
     Indication: Metastases to bone
  4. LONSURF [Suspect]
     Active Substance: TIPIRACIL HYDROCHLORIDE\TRIFLURIDINE
     Indication: Metastases to lymph nodes

REACTIONS (3)
  - Death [Fatal]
  - Product label confusion [Unknown]
  - Off label use [Unknown]

NARRATIVE: CASE EVENT DATE: 20220801
